FAERS Safety Report 5097661-3 (Version None)
Quarter: 2006Q3

REPORT INFORMATION
  Report Type: 
  Country: None (occurrence: None)
  Receive Date: 20060831
  Receipt Date: 20060822
  Transmission Date: 20061208
  Serious: Yes (Hospitalization)
  Sender: FDA-Public Use
  Company Number: THYM-11036

PATIENT
  Age: 25 Year
  Sex: Female
  Weight: 69 kg

DRUGS (13)
  1. THYMOGLOBULIN [Suspect]
     Indication: RENAL TRANSPLANT
     Dosage: 100 MG QD IV
     Route: 042
     Dates: start: 20060704, end: 20060705
  2. THYMOGLOBULIN [Suspect]
     Indication: RENAL TRANSPLANT
     Dosage: 100 MG QD IV
     Route: 042
     Dates: start: 20060707, end: 20060707
  3. THYMOGLOBULIN [Suspect]
     Indication: RENAL TRANSPLANT
     Dosage: 100 MG QD IV
     Route: 042
     Dates: start: 20060712, end: 20060712
  4. THYMOGLOBULIN [Suspect]
     Indication: RENAL TRANSPLANT
     Dosage: 100 MG QD IV
     Route: 042
     Dates: start: 20060724, end: 20060727
  5. CELLCEPT [Concomitant]
  6. PROGRAF [Concomitant]
  7. PREDNISONE TAB [Concomitant]
  8. BACTRIM [Concomitant]
  9. FLUCONAZOLE [Concomitant]
  10. VALCYTE [Concomitant]
  11. FLAGYL [Concomitant]
  12. RANITIDINE [Concomitant]
  13. METHYLPREDNISOLONE [Concomitant]

REACTIONS (3)
  - CONVULSION [None]
  - INCISIONAL DRAINAGE [None]
  - SUPERIOR SAGITTAL SINUS THROMBOSIS [None]
